FAERS Safety Report 10086576 (Version 2)
Quarter: 2014Q2

REPORT INFORMATION
  Report Type: Spontaneous
  Country: US (occurrence: US)
  Receive Date: 20140418
  Receipt Date: 20140424
  Transmission Date: 20141212
  Serious: Yes (Other)
  Sender: FDA-Public Use
  Company Number: US-PFIZER INC-2014106878

PATIENT
  Age: 56 Year
  Sex: Male
  Weight: 115.65 kg

DRUGS (1)
  1. PROVERA [Suspect]
     Indication: CARDIAC DISORDER
     Dosage: UNK

REACTIONS (1)
  - Blindness [Not Recovered/Not Resolved]
